FAERS Safety Report 25275010 (Version 2)
Quarter: 2025Q2

REPORT INFORMATION
  Report Type: Report from Study
  Country: US (occurrence: US)
  Receive Date: 20250506
  Receipt Date: 20250606
  Transmission Date: 20250717
  Serious: No
  Sender: MERCK SHARP & DOHME LLC
  Company Number: US-009507513-2282407

PATIENT
  Age: 38 Year
  Sex: Female
  Weight: 59.874 kg

DRUGS (18)
  1. WINREVAIR [Suspect]
     Active Substance: SOTATERCEPT-CSRK
     Indication: Product used for unknown indication
  2. WINREVAIR [Suspect]
     Active Substance: SOTATERCEPT-CSRK
  3. WINREVAIR [Suspect]
     Active Substance: SOTATERCEPT-CSRK
  4. WINREVAIR [Suspect]
     Active Substance: SOTATERCEPT-CSRK
  5. WINREVAIR [Suspect]
     Active Substance: SOTATERCEPT-CSRK
     Indication: Pulmonary arterial hypertension
     Dosage: 0.8 ML Q3W
     Route: 058
     Dates: start: 20241222
  6. WINREVAIR [Suspect]
     Active Substance: SOTATERCEPT-CSRK
  7. WINREVAIR [Suspect]
     Active Substance: SOTATERCEPT-CSRK
  8. WINREVAIR [Suspect]
     Active Substance: SOTATERCEPT-CSRK
  9. WINREVAIR [Suspect]
     Active Substance: SOTATERCEPT-CSRK
  10. WINREVAIR [Suspect]
     Active Substance: SOTATERCEPT-CSRK
  11. WINREVAIR [Suspect]
     Active Substance: SOTATERCEPT-CSRK
  12. WINREVAIR [Suspect]
     Active Substance: SOTATERCEPT-CSRK
  13. WINREVAIR [Suspect]
     Active Substance: SOTATERCEPT-CSRK
  14. WINREVAIR [Suspect]
     Active Substance: SOTATERCEPT-CSRK
  15. WINREVAIR [Suspect]
     Active Substance: SOTATERCEPT-CSRK
  16. WINREVAIR [Suspect]
     Active Substance: SOTATERCEPT-CSRK
  17. REMODULIN [Suspect]
     Active Substance: TREPROSTINIL
     Indication: Pulmonary arterial hypertension
     Route: 041
  18. OPSUMIT [Concomitant]
     Active Substance: MACITENTAN

REACTIONS (4)
  - Dyspnoea [Recovered/Resolved]
  - Nocturnal dyspnoea [Recovered/Resolved]
  - Haemoglobin increased [Unknown]
  - Dyspnoea exertional [Unknown]

NARRATIVE: CASE EVENT DATE: 20240801
